FAERS Safety Report 6263050-9 (Version None)
Quarter: 2009Q3

REPORT INFORMATION
  Report Type: 
  Country: None (occurrence: None)
  Receive Date: 20090708
  Receipt Date: 20090708
  Transmission Date: 20100115
  Serious: Yes (Other)
  Sender: FDA-Public Use
  Company Number: None

PATIENT
  Age: 68 Year
  Sex: Male
  Weight: 87.9978 kg

DRUGS (1)
  1. METHYLPREDNISOLONE 21 METHYLPREDNISOLON QUALITEST [Suspect]
     Indication: BACK PAIN
     Dosage: 6 PILLS DAY 1, 5 DAY 2, 4 DAY3, 2 DAYS -THEN TOLD TO STOP
     Dates: start: 20090610, end: 20090611

REACTIONS (5)
  - ADVERSE EVENT [None]
  - ANXIETY [None]
  - DRUG TOXICITY [None]
  - INSOMNIA [None]
  - TINNITUS [None]
